FAERS Safety Report 9271095 (Version 1)
Quarter: 2013Q2

REPORT INFORMATION
  Report Type: Spontaneous
  Country: IT (occurrence: IT)
  Receive Date: 20130506
  Receipt Date: 20130506
  Transmission Date: 20140414
  Serious: Yes (Other)
  Sender: FDA-Public Use
  Company Number: IT-JNJFOC-20130414233

PATIENT
  Sex: 0

DRUGS (3)
  1. INFLIXIMAB, RECOMBINANT [Suspect]
     Indication: COLITIS ULCERATIVE
     Route: 042
  2. INFLIXIMAB, RECOMBINANT [Suspect]
     Indication: CROHN^S DISEASE
     Route: 042
  3. INFLIXIMAB, RECOMBINANT [Suspect]
     Indication: INFLAMMATORY BOWEL DISEASE
     Route: 042

REACTIONS (14)
  - Infusion related reaction [Unknown]
  - Chest pain [Unknown]
  - Hypotension [Unknown]
  - Hypertension [Unknown]
  - Pyrexia [Unknown]
  - Dyspnoea [Unknown]
  - Heart rate irregular [Unknown]
  - Chest discomfort [Unknown]
  - Disease recurrence [Unknown]
  - Erythema [Unknown]
  - Palpitations [Unknown]
  - Rash [Unknown]
  - Nausea [Unknown]
  - Dizziness [Unknown]
